FAERS Safety Report 7534915-2 (Version None)
Quarter: 2011Q2

REPORT INFORMATION
  Report Type: 
  Country: None (occurrence: None)
  Receive Date: 20110609
  Receipt Date: 20081121
  Transmission Date: 20111010
  Serious: Yes (Other)
  Sender: FDA-Public Use
  Company Number: PHHY2008US28828

PATIENT
  Sex: Female

DRUGS (1)
  1. EXJADE [Suspect]
     Indication: LEUKAEMIA PLASMACYTIC
     Dosage: 1500 MG, QID
     Route: 048
     Dates: start: 20080724, end: 20081117

REACTIONS (1)
  - VISION BLURRED [None]
